FAERS Safety Report 11150431 (Version 3)
Quarter: 2015Q3

REPORT INFORMATION
  Report Type: Spontaneous
  Country: ES (occurrence: ES)
  Receive Date: 20150531
  Receipt Date: 20150701
  Transmission Date: 20151125
  Serious: Yes (Other)
  Sender: FDA-Public Use
  Company Number: ES-AMGEN-ESPSP2015040967

PATIENT
  Age: 49 Year
  Sex: Male

DRUGS (11)
  1. ACOXXEL [Concomitant]
     Active Substance: ETORICOXIB
     Indication: PAIN
     Dosage: 60 MG, 1X/DAY ( (1 EVERY 24 HOURS, AT NIGHTS)
  2. AMLODIPINE [Concomitant]
     Active Substance: AMLODIPINE BESYLATE
     Indication: HYPERTENSION
     Dosage: 5 MG, 1X/DAY (ONE EVERY 24 HOURS, (IN THE MORNINGS)
  3. VALSARTAN. [Concomitant]
     Active Substance: VALSARTAN
     Indication: HYPERTENSION
     Dosage: 160 MG, 1X/DAY (ONE EVERY 24 HOURS, IN THE MORNINGS)
  4. NOLOTIL                            /00473101/ [Concomitant]
     Active Substance: METAMIZOLE
     Indication: PAIN
     Dosage: 575 MG, 2X/DAY (ONE EVERY 12 HOURS)
  5. CEMIDON [Concomitant]
     Active Substance: ISONIAZID
     Indication: TUBERCULIN TEST POSITIVE
     Dosage: 300 MG, 1X/DAY (ONE EVERY 24 HOURS, IN THE MORNINGS)
  6. ACOXXEL [Concomitant]
     Active Substance: ETORICOXIB
     Dosage: 90 MG, ONE  DF DAILY
  7. ENBREL [Suspect]
     Active Substance: ETANERCEPT
     Dosage: 50 MG, WEEKLY (ON MONDAYS)
     Route: 058
  8. ENBREL [Suspect]
     Active Substance: ETANERCEPT
     Indication: ANKYLOSING SPONDYLITIS
     Dosage: 50 MG, WEEKLY (ON MONDAYS)
     Route: 058
     Dates: start: 20150323
  9. ENBREL [Suspect]
     Active Substance: ETANERCEPT
     Dosage: UNK
     Route: 065
  10. DEPRAX                             /00447702/ [Concomitant]
     Active Substance: TRAZODONE HYDROCHLORIDE
     Dosage: 100 MG, 1X/DAY (ONE EVERY 24 HOURS, AT NIGHTS)
  11. PARACETAMOL [Concomitant]
     Active Substance: ACETAMINOPHEN
     Indication: PAIN
     Dosage: 1 G, 1X/DAY (ONE EVERY 24 HOURS, IN THE MORNING OR AT MIDDAY)

REACTIONS (18)
  - Suffocation feeling [Recovered/Resolved]
  - Injection site induration [Not Recovered/Not Resolved]
  - Throat irritation [Recovered/Resolved]
  - Injection site pruritus [Not Recovered/Not Resolved]
  - Injection site erythema [Not Recovered/Not Resolved]
  - Back pain [Unknown]
  - Ankylosing spondylitis [Unknown]
  - Pain [Unknown]
  - Nasopharyngitis [Recovered/Resolved]
  - Condition aggravated [Unknown]
  - Pain [Recovering/Resolving]
  - Mobility decreased [Recovering/Resolving]
  - Injection site pain [Not Recovered/Not Resolved]
  - Cough [Recovered/Resolved]
  - Secretion discharge [Recovered/Resolved]
  - Arthralgia [Unknown]
  - Injection site swelling [Not Recovered/Not Resolved]
  - Injection site reaction [Unknown]

NARRATIVE: CASE EVENT DATE: 2015
